FAERS Safety Report 7360694-8 (Version None)
Quarter: 2011Q1

REPORT INFORMATION
  Report Type: 
  Country: None (occurrence: None)
  Receive Date: 20110318
  Receipt Date: 20110225
  Transmission Date: 20110831
  Serious: Yes (Hospitalization)
  Sender: FDA-Public Use
  Company Number: US-BAYER-200915573NA

PATIENT
  Sex: Male
  Weight: 122 kg

DRUGS (9)
  1. TRASYLOL [Suspect]
     Dosage: 25 CC/HOUR
     Route: 042
     Dates: start: 20021101, end: 20021101
  2. SOLU-MEDROL [Concomitant]
     Dosage: UNK
     Route: 042
     Dates: start: 20021101, end: 20021101
  3. DIPRIVAN [Concomitant]
     Dosage: UNK
     Route: 042
     Dates: start: 20021101, end: 20021101
  4. ANCEF [Concomitant]
     Dosage: UNK
     Route: 042
     Dates: start: 20021101
  5. INSULIN [Concomitant]
     Indication: DIABETES MELLITUS
     Dosage: UNK
     Route: 042
     Dates: start: 20021101
  6. VERSED [Concomitant]
     Dosage: UNK
     Route: 042
     Dates: start: 20021101, end: 20021101
  7. HEPARIN [Concomitant]
     Dosage: UNK
     Route: 042
     Dates: start: 20021101, end: 20021101
  8. TRASYLOL [Suspect]
     Dosage: 140 MG, UNK
     Route: 042
     Dates: start: 20021101, end: 20021101
  9. TRASYLOL [Suspect]
     Indication: CORONARY ARTERY BYPASS
     Dosage: 100 ML
     Route: 042
     Dates: start: 20021101, end: 20021101

REACTIONS (9)
  - INJURY [None]
  - ADVERSE EVENT [None]
  - FEAR [None]
  - PAIN [None]
  - UNEVALUABLE EVENT [None]
  - ANXIETY [None]
  - DEPRESSION [None]
  - ANHEDONIA [None]
  - RENAL FAILURE [None]
